FAERS Safety Report 11186149 (Version 1)
Quarter: 2015Q2

REPORT INFORMATION
  Report Type: Spontaneous
  Country: GB (occurrence: GB)
  Receive Date: 20150612
  Receipt Date: 20150612
  Transmission Date: 20150821
  Serious: Yes (Other)
  Sender: FDA-Public Use
  Company Number: GB-009507513-1506GBR003631

PATIENT
  Age: 37 Year
  Sex: Male

DRUGS (3)
  1. OMEPRAZOLE. [Suspect]
     Active Substance: OMEPRAZOLE
     Dosage: 15 MG, UNK, LAST PRESCRIPTION ISSUED IN MARCH
     Route: 048
  2. METHADONE HYDROCHLORIDE. [Concomitant]
     Active Substance: METHADONE HYDROCHLORIDE
  3. MIRTAZAPINE. [Suspect]
     Active Substance: MIRTAZAPINE
     Indication: DEPRESSION
     Dosage: 15 MG, QD, LAST PRESCRIPTION ISSUED IN MARCH
     Route: 048

REACTIONS (1)
  - Platelet count decreased [Not Recovered/Not Resolved]
